FAERS Safety Report 11700689 (Version 1)
Quarter: 2015Q4

REPORT INFORMATION
  Report Type: Spontaneous
  Country: US (occurrence: None)
  Receive Date: 20151104
  Receipt Date: 20151104
  Transmission Date: 20160304
  Serious: Yes (Disabling)
  Sender: FDA-Public Use
  Company Number: None

PATIENT
  Age: 49 Year
  Sex: Female
  Weight: 73.4 kg

DRUGS (8)
  1. MAGNESIUM HYDROXIDE/AL HYDROX (MAG-AL ORAL) [Concomitant]
  2. CYCLOSPORINE. [Suspect]
     Active Substance: CYCLOSPORINE
     Indication: LYMPHOCYTIC LEUKAEMIA
     Route: 048
     Dates: start: 20150124, end: 20151012
  3. DSS (COLACE) [Concomitant]
  4. SALIVA SUBSTITUTION COMBO NO. 2 (CAPHASOL) SOLUTION [Concomitant]
  5. NEORAL ONLY POTASSIUM CHLORIDE SA (K-DUR, KLOR-CON) [Concomitant]
  6. CA CARBONATE/MAG OXIDE/C/BETA [Concomitant]
  7. MULTIVITAMIN/IRON/FOLIC ACID (MULTI COMPLETE WITH IRON ORAL) [Concomitant]
  8. DIPHENHYDRAMINE/LIDOCAINE/MAALOX PLUS [Concomitant]

REACTIONS (1)
  - Acute kidney injury [None]

NARRATIVE: CASE EVENT DATE: 20151012
